FAERS Safety Report 10190770 (Version 1)
Quarter: 2014Q2

REPORT INFORMATION
  Report Type: Spontaneous
  Country: GB (occurrence: GB)
  Receive Date: 20140523
  Receipt Date: 20140523
  Transmission Date: 20141212
  Serious: Yes (Other)
  Sender: FDA-Public Use
  Company Number: GB-PAR PHARMACEUTICAL, INC-2014SCPR009078

PATIENT
  Sex: 0

DRUGS (2)
  1. CABERGOLINE [Suspect]
     Indication: HYPERPROLACTINAEMIA
     Dosage: 0.5 MG, WEEKLY
     Route: 065
     Dates: start: 2001, end: 2005
  2. CABERGOLINE [Suspect]
     Dosage: 3 MG, WEEKLY
     Route: 065
     Dates: start: 2005

REACTIONS (3)
  - Impulse-control disorder [Unknown]
  - Neck pain [Recovered/Resolved]
  - Headache [Recovered/Resolved]
